FAERS Safety Report 23221937 (Version 1)
Quarter: 2023Q4

REPORT INFORMATION
  Report Type: Other
  Country: ES (occurrence: ES)
  Receive Date: 20231123
  Receipt Date: 20231123
  Transmission Date: 20240110
  Serious: Yes (Hospitalization, Other)
  Sender: FDA-Public Use
  Company Number: ES-EMA-DD-20231017-7180171-162504

PATIENT

DRUGS (20)
  1. ACETAMINOPHEN [Suspect]
     Active Substance: ACETAMINOPHEN
     Indication: Product used for unknown indication
     Dosage: 1 G, TID
     Route: 065
  2. ESOMEPRAZOLE [Suspect]
     Active Substance: ESOMEPRAZOLE
     Indication: Product used for unknown indication
     Dosage: 40 MG, QD
     Route: 065
  3. PACLITAXEL [Suspect]
     Active Substance: PACLITAXEL
     Indication: Non-small cell lung cancer metastatic
     Dosage: UNK
     Route: 042
     Dates: start: 20230817, end: 20230817
  4. PACLITAXEL [Suspect]
     Active Substance: PACLITAXEL
     Dosage: UNK
     Route: 042
     Dates: start: 20230727, end: 20230727
  5. METAMIZOLE MAGNESIUM [Suspect]
     Active Substance: METAMIZOLE MAGNESIUM
     Indication: Product used for unknown indication
     Dosage: 2 G EVERY 8 HOURS
     Route: 065
  6. FUROSEMIDE [Suspect]
     Active Substance: FUROSEMIDE
     Indication: Product used for unknown indication
     Dosage: 40 MILLIGRAM, QD
     Route: 065
  7. ENOXAPARIN SODIUM [Suspect]
     Active Substance: ENOXAPARIN SODIUM
     Indication: Product used for unknown indication
     Dosage: 100 MILLIGRAM (6 MONTHS)
     Route: 058
  8. CARBOPLATIN [Suspect]
     Active Substance: CARBOPLATIN
     Indication: Non-small cell lung cancer metastatic
     Dosage: UNK
     Route: 042
     Dates: start: 20230817, end: 20230817
  9. CARBOPLATIN [Suspect]
     Active Substance: CARBOPLATIN
     Dosage: UNK
     Route: 042
     Dates: start: 20230727, end: 20230727
  10. ALPRAZOLAM [Suspect]
     Active Substance: ALPRAZOLAM
     Indication: Product used for unknown indication
     Dosage: 0.25 MILLIGRAM, EVERY 8 HOURS
     Route: 065
  11. DOMVANALIMAB [Suspect]
     Active Substance: DOMVANALIMAB
     Indication: Non-small cell lung cancer metastatic
     Dosage: UNK
     Route: 042
     Dates: start: 20230627, end: 20230627
  12. DOMVANALIMAB [Suspect]
     Active Substance: DOMVANALIMAB
     Dosage: UNK
     Route: 042
     Dates: start: 20230817, end: 20230817
  13. ZIMBERELIMAB [Suspect]
     Active Substance: ZIMBERELIMAB
     Indication: Non-small cell lung cancer metastatic
     Dosage: 360 MG
     Route: 042
     Dates: start: 20230817, end: 20230817
  14. ZIMBERELIMAB [Suspect]
     Active Substance: ZIMBERELIMAB
     Dosage: 360 MG
     Route: 042
     Dates: start: 20230727, end: 20230727
  15. METAMIZOLE [Concomitant]
     Active Substance: METAMIZOLE
     Indication: Product used for unknown indication
     Dosage: UNK
     Route: 065
     Dates: start: 20230810
  16. VALIUM [Concomitant]
     Active Substance: DIAZEPAM
     Indication: Product used for unknown indication
     Dosage: UNK
     Route: 065
     Dates: start: 20230822
  17. FUROSEMIDE [Concomitant]
     Active Substance: FUROSEMIDE
     Indication: Product used for unknown indication
     Dosage: UNK
     Route: 065
     Dates: start: 20230822
  18. TRAMADOL [Concomitant]
     Active Substance: TRAMADOL\TRAMADOL HYDROCHLORIDE
     Indication: Product used for unknown indication
     Dosage: UNK
     Route: 065
     Dates: start: 20230810
  19. IBUPROFEN [Concomitant]
     Active Substance: IBUPROFEN
     Indication: Product used for unknown indication
     Dosage: UNK
     Route: 065
     Dates: start: 20230501
  20. ONDANSETRON [Concomitant]
     Active Substance: ONDANSETRON
     Indication: Product used for unknown indication
     Dosage: UNK
     Route: 065
     Dates: start: 20230820

REACTIONS (4)
  - Dysphagia [Recovered/Resolved]
  - Fatigue [Recovered/Resolved]
  - Nausea [Recovering/Resolving]
  - Vomiting [Recovered/Resolved]

NARRATIVE: CASE EVENT DATE: 20230820
